FAERS Safety Report 24573927 (Version 1)
Quarter: 2024Q4

REPORT INFORMATION
  Report Type: Spontaneous
  Country: US (occurrence: US)
  Receive Date: 20241104
  Receipt Date: 20241104
  Transmission Date: 20250114
  Serious: No
  Sender: TEVA
  Company Number: US-TEVA-VS-3254623

PATIENT
  Age: 65 Year
  Sex: Female

DRUGS (1)
  1. PRAVASTATIN SODIUM [Suspect]
     Active Substance: PRAVASTATIN SODIUM
     Indication: Product used for unknown indication
     Route: 065

REACTIONS (5)
  - Polyuria [Recovered/Resolved]
  - Urinary incontinence [Recovered/Resolved]
  - Abdominal pain upper [Recovered/Resolved]
  - Product dose omission issue [Unknown]
  - Headache [Recovered/Resolved]
